FAERS Safety Report 5288840-0 (Version None)
Quarter: 2007Q2

REPORT INFORMATION
  Report Type: 
  Country: None (occurrence: None)
  Receive Date: 20070405
  Receipt Date: 20070330
  Transmission Date: 20071010
  Serious: Yes (Hospitalization)
  Sender: FDA-Public Use
  Company Number: PH-MERCK-0703PHL00009

PATIENT
  Age: 81 Year
  Sex: Female

DRUGS (3)
  1. FOSAMAX PLUS D [Suspect]
     Indication: OSTEOPOROSIS
     Route: 048
     Dates: start: 20070201, end: 20070201
  2. ALENDRONATE SODIUM [Concomitant]
     Indication: OSTEOPOROSIS
     Route: 048
     Dates: start: 20060101, end: 20070201
  3. ALENDRONATE SODIUM [Concomitant]
     Route: 048
     Dates: start: 20070323

REACTIONS (3)
  - COMPRESSION FRACTURE [None]
  - HAEMORRHAGE [None]
  - VOMITING [None]
